FAERS Safety Report 4980637-1 (Version None)
Quarter: 2006Q2

REPORT INFORMATION
  Report Type: 
  Country: None (occurrence: None)
  Receive Date: 20060424
  Receipt Date: 20050825
  Transmission Date: 20061013
  Serious: Yes (Other)
  Sender: FDA-Public Use
  Company Number: US-MERCK-0508USA04326

PATIENT
  Age: 68 Year
  Sex: Female
  Weight: 71 kg

DRUGS (2)
  1. VIOXX [Suspect]
     Indication: ARTHRITIS
     Route: 048
     Dates: start: 20000308, end: 20040901
  2. VIOXX [Suspect]
     Route: 048
     Dates: start: 20000308, end: 20040901

REACTIONS (2)
  - MYOCARDIAL INFARCTION [None]
  - NEOPLASM [None]
